FAERS Safety Report 5839200-2 (Version None)
Quarter: 2008Q3

REPORT INFORMATION
  Report Type: 
  Country: None (occurrence: None)
  Receive Date: 20080808
  Receipt Date: 20080804
  Transmission Date: 20090109
  Serious: Yes (Disabling)
  Sender: FDA-Public Use
  Company Number: US-MERCK-0705USA01330

PATIENT
  Age: 72 Year
  Sex: Male

DRUGS (7)
  1. FOSAMAX [Suspect]
     Indication: OSTEOPOROSIS
     Route: 048
     Dates: start: 20000101, end: 20061201
  2. FOSAMAX [Suspect]
     Route: 048
     Dates: start: 19980319
  3. FOSAMAX [Suspect]
     Route: 048
  4. FOSAMAX [Suspect]
     Route: 048
  5. FOSAMAX [Suspect]
     Route: 048
     Dates: start: 20020101
  6. PRINIVIL [Concomitant]
     Route: 048
  7. ASPIRIN [Concomitant]
     Route: 065

REACTIONS (13)
  - ABSCESS ORAL [None]
  - ANXIETY [None]
  - BACK PAIN [None]
  - DENTAL CARIES [None]
  - DEPRESSION [None]
  - DIZZINESS [None]
  - FUNGAL INFECTION [None]
  - HYPERTENSION [None]
  - INAPPROPRIATE SCHEDULE OF DRUG ADMINISTRATION [None]
  - OSTEONECROSIS [None]
  - RESORPTION BONE INCREASED [None]
  - SLEEP APNOEA SYNDROME [None]
  - WRONG TECHNIQUE IN DRUG USAGE PROCESS [None]
